FAERS Safety Report 15410806 (Version 1)
Quarter: 2018Q3

REPORT INFORMATION
  Report Type: Spontaneous
  Country: TR (occurrence: TR)
  Receive Date: 20180921
  Receipt Date: 20180921
  Transmission Date: 20181010
  Serious: Yes (Life-Threatening, Hospitalization, Other)
  Sender: FDA-Public Use
  Company Number: TR-ALKEM LABORATORIES LIMITED-TR-ALKEM-2018-07595

PATIENT
  Age: 41 Year
  Sex: Male

DRUGS (3)
  1. VALPROIC ACID. [Interacting]
     Active Substance: VALPROIC ACID
     Indication: EPILEPSY
     Dosage: 2000 MG, UNK
     Route: 065
  2. QUETIAPINE FUMARATE. [Suspect]
     Active Substance: QUETIAPINE FUMARATE
     Indication: SCHIZOPHRENIA
     Dosage: 400 MG, UNK
     Route: 065
  3. QUETIAPINE FUMARATE. [Interacting]
     Active Substance: QUETIAPINE FUMARATE
     Dosage: 200 MG, UNK
     Route: 065

REACTIONS (2)
  - Drug interaction [Unknown]
  - Hyperammonaemic encephalopathy [Recovered/Resolved]
